FAERS Safety Report 4540830-9 (Version None)
Quarter: 2004Q4

REPORT INFORMATION
  Report Type: 
  Country: None (occurrence: None)
  Receive Date: 20041229
  Receipt Date: 20041006
  Transmission Date: 20050328
  Serious: Yes (Life-Threatening, Hospitalization)
  Sender: FDA-Public Use
  Company Number: US-MERCK-0410USA00682

PATIENT
  Age: 72 Year
  Sex: Male

DRUGS (3)
  1. VIOXX [Suspect]
     Indication: INJURY
     Route: 048
     Dates: start: 20000101
  2. METOPROLOL [Concomitant]
     Route: 065
  3. LOVASTATIN [Concomitant]
     Route: 065

REACTIONS (3)
  - INTRACARDIAC THROMBUS [None]
  - OESOPHAGEAL RUPTURE [None]
  - THROMBOSIS [None]
